FAERS Safety Report 4319287-9 (Version None)
Quarter: 2004Q1

REPORT INFORMATION
  Report Type: 
  Country: None (occurrence: None)
  Receive Date: 20040318
  Receipt Date: 20040318
  Transmission Date: 20041129
  Serious: Yes (Death)
  Sender: FDA-Public Use
  Company Number: None

PATIENT
  Sex: Female
  Weight: 63.5036 kg

DRUGS (2)
  1. CRESTOR [Suspect]
     Indication: HYPERLIPIDAEMIA
     Dates: start: 20040220, end: 20040229
  2. FLEXERIL [Suspect]
     Indication: ARTHRALGIA
     Dates: start: 20040220, end: 20040229

REACTIONS (2)
  - GASTROINTESTINAL DISORDER [None]
  - HEPATIC NECROSIS [None]
